FAERS Safety Report 5095222-3 (Version None)
Quarter: 2006Q3

REPORT INFORMATION
  Report Type: 
  Country: None (occurrence: None)
  Receive Date: 20060830
  Receipt Date: 20060822
  Transmission Date: 20061208
  Serious: Yes (Other)
  Sender: FDA-Public Use
  Company Number: HQ6003003JAN2003

PATIENT
  Age: 61 Year
  Sex: Female

DRUGS (2)
  1. PREMPRO [Suspect]
     Dates: start: 19960701
  2. PREMARIN [Suspect]

REACTIONS (10)
  - DYSMENORRHOEA [None]
  - ENDOMETRIAL HYPERTROPHY [None]
  - ENDOMETRITIS [None]
  - HEPATIC CYST [None]
  - MENSTRUAL DISORDER [None]
  - NERVE INJURY [None]
  - OVARIAN CYST [None]
  - PELVIC MASS [None]
  - UTERINE ENLARGEMENT [None]
  - UTERINE POLYP [None]
